FAERS Safety Report 11103662 (Version 1)
Quarter: 2015Q2

REPORT INFORMATION
  Report Type: Spontaneous
  Country: PL (occurrence: PL)
  Receive Date: 20150511
  Receipt Date: 20150511
  Transmission Date: 20150821
  Serious: Yes (Hospitalization)
  Sender: FDA-Public Use
  Company Number: PL-GLAXOSMITHKLINE-PL2015060891

PATIENT
  Age: 53 Year
  Sex: Male
  Weight: 75 kg

DRUGS (2)
  1. ABILIFY [Concomitant]
     Active Substance: ARIPIPRAZOLE
     Indication: MANIA
     Dosage: DOSE:15
     Route: 048
     Dates: start: 20150207, end: 20150219
  2. LAMITRIN [Suspect]
     Active Substance: LAMOTRIGINE
     Indication: MANIA
     Route: 048
     Dates: start: 20150207, end: 20150219

REACTIONS (10)
  - Rash generalised [Recovered/Resolved]
  - Laboratory test abnormal [Recovered/Resolved]
  - Alanine aminotransferase increased [Recovered/Resolved]
  - Aspartate aminotransferase increased [Recovered/Resolved]
  - Adverse drug reaction [Recovered/Resolved]
  - Red blood cell sedimentation rate increased [Recovered/Resolved]
  - Fibrin D dimer increased [Recovered/Resolved]
  - Blood urea increased [Recovered/Resolved]
  - Blood creatinine increased [Recovered/Resolved]
  - C-reactive protein increased [Recovered/Resolved]

NARRATIVE: CASE EVENT DATE: 20150218
